FAERS Safety Report 7547472-1 (Version None)
Quarter: 2011Q2

REPORT INFORMATION
  Report Type: 
  Country: None (occurrence: None)
  Receive Date: 20110614
  Receipt Date: 20110607
  Transmission Date: 20111010
  Serious: Yes (Death)
  Sender: FDA-Public Use
  Company Number: BR-CELGENEUS-020-50794-11061618

PATIENT
  Age: 76 Year
  Sex: Male

DRUGS (1)
  1. VIDAZA [Suspect]
     Route: 065

REACTIONS (1)
  - LUNG INFECTION [None]
